FAERS Safety Report 10950988 (Version 2)
Quarter: 2015Q2

REPORT INFORMATION
  Report Type: Spontaneous
  Country: JP (occurrence: JP)
  Receive Date: 20150324
  Receipt Date: 20150401
  Transmission Date: 20150821
  Serious: Yes (Other)
  Sender: FDA-Public Use
  Company Number: JP-PFIZER INC-2015099215

PATIENT
  Age: 76 Year
  Sex: Male

DRUGS (2)
  1. CABASER [Suspect]
     Active Substance: CABERGOLINE
     Dosage: UNK
     Route: 048
     Dates: start: 20150311
  2. SIGMART [Concomitant]
     Active Substance: NICORANDIL
     Dosage: UNK

REACTIONS (2)
  - Angina pectoris [Recovered/Resolved]
  - Chest pain [Recovered/Resolved]

NARRATIVE: CASE EVENT DATE: 20150312
